FAERS Safety Report 7277504-X (Version None)
Quarter: 2011Q1

REPORT INFORMATION
  Report Type: 
  Country: None (occurrence: None)
  Receive Date: 20110207
  Receipt Date: 20110125
  Transmission Date: 20110831
  Serious: Yes (Hospitalization, Other)
  Sender: FDA-Public Use
  Company Number: US-ELI_LILLY_AND_COMPANY-US200905004610

PATIENT
  Sex: Female

DRUGS (10)
  1. FORTEO [Suspect]
     Dosage: 20 UG, DAILY (1/D)
  2. PLAVIX [Concomitant]
     Dosage: UNK, UNK
  3. BETA BLOCKING AGENTS [Concomitant]
  4. FORTEO [Suspect]
     Dosage: 20 UG, DAILY (1/D)
     Route: 065
     Dates: start: 20090101
  5. FORTEO [Suspect]
     Dosage: 20 UG, DAILY (1/D)
     Dates: start: 20090101
  6. CALCIUM                                 /N/A/ [Concomitant]
  7. VITAMINS NOS [Concomitant]
  8. FORTEO [Suspect]
     Dosage: 20 UG, DAILY (1/D)
  9. FORTEO [Suspect]
     Indication: OSTEOPOROSIS
     Dosage: 20 UG, DAILY (1/D)
  10. COUMADIN [Concomitant]

REACTIONS (11)
  - INJECTION SITE HAEMORRHAGE [None]
  - PAIN [None]
  - CATARACT OPERATION [None]
  - SPEECH DISORDER [None]
  - URINARY TRACT INFECTION [None]
  - TRANSIENT ISCHAEMIC ATTACK [None]
  - PLEURISY [None]
  - INJECTION SITE ERYTHEMA [None]
  - LACRIMATION INCREASED [None]
  - POST PROCEDURAL COMPLICATION [None]
  - CAROTID ARTERY STENOSIS [None]
